FAERS Safety Report 8815671 (Version 1)
Quarter: 2012Q4

REPORT INFORMATION
  Report Type: 
  Country: US (occurrence: US)
  Receive Date: 20120928
  Receipt Date: 20120928
  Transmission Date: 20130627
  Serious: Yes (Other)
  Sender: FDA-Public Use
  Company Number: US-ASTRAZENECA-2012SE73288

PATIENT
  Age: 52 Year
  Sex: Female

DRUGS (5)
  1. SEROQUEL XR [Suspect]
     Indication: BIPOLAR I DISORDER
     Route: 048
     Dates: start: 2010, end: 2012
  2. SEROQUEL XR [Suspect]
     Indication: BIPOLAR I DISORDER
     Route: 048
     Dates: start: 2012, end: 2012
  3. SEROQUEL XR [Suspect]
     Indication: BIPOLAR I DISORDER
     Route: 048
     Dates: start: 2012
  4. AMBIEN [Concomitant]
     Dosage: AS NEEDED
     Route: 048
  5. ATIVAN [Concomitant]
     Dosage: AS NEEDED
     Route: 048

REACTIONS (2)
  - Self-injurious ideation [Recovered/Resolved]
  - Mood altered [Recovered/Resolved]
